FAERS Safety Report 14425105 (Version 2)
Quarter: 2018Q3

REPORT INFORMATION
  Report Type: Spontaneous
  Country: CO (occurrence: CO)
  Receive Date: 20180123
  Receipt Date: 20180802
  Transmission Date: 20181010
  Serious: Yes (Hospitalization)
  Sender: FDA-Public Use
  Company Number: CO-ORPHAN EUROPE-2040617

PATIENT
  Age: 5 Year
  Sex: Male
  Weight: 16 kg

DRUGS (7)
  1. LEVETIRACETAM. [Concomitant]
     Active Substance: LEVETIRACETAM
  2. FENOBARBITAL [Concomitant]
     Active Substance: PHENOBARBITAL
     Route: 048
  3. L?CARNITINA [Concomitant]
     Active Substance: LEVOCARNITINE
     Route: 048
  4. L?ARGININE [Concomitant]
     Active Substance: ARGININE
     Route: 048
  5. PIRIDOXINA [Concomitant]
     Route: 048
  6. CARBAGLU [Suspect]
     Active Substance: CARGLUMIC ACID
     Indication: ORNITHINE TRANSCARBAMOYLASE DEFICIENCY
     Dates: start: 2012
  7. ACIDO FOLICO [Concomitant]
     Active Substance: CYANOCOBALAMIN\FOLIC ACID\PYRIDOXINE HYDROCHLORIDE
     Route: 048

REACTIONS (4)
  - Off label use [Recovered/Resolved]
  - Seizure [Recovered/Resolved]
  - Vomiting [Recovered/Resolved]
  - Influenza [Recovered/Resolved]

NARRATIVE: CASE EVENT DATE: 2012
